FAERS Safety Report 7226539-1 (Version None)
Quarter: 2011Q1

REPORT INFORMATION
  Report Type: 
  Country: None (occurrence: None)
  Receive Date: 20110114
  Receipt Date: 20100622
  Transmission Date: 20110831
  Serious: Yes (Death, Other)
  Sender: FDA-Public Use
  Company Number: US-BAYER-US-2007-034249

PATIENT
  Sex: Female
  Weight: 73.636 kg

DRUGS (6)
  1. YASMIN [Suspect]
     Indication: CONTRACEPTION
     Dosage: UNK TAB(S), UNK
     Route: 048
     Dates: start: 20030201
  2. MARCAINE [Concomitant]
     Indication: ARTHRALGIA
     Dates: start: 20030922, end: 20030922
  3. TYLENOL W/ CODEINE NO. 3 [Concomitant]
     Indication: PRODUCT USED FOR UNKNOWN INDICATION
  4. CLARITIN [Concomitant]
     Indication: PRODUCT USED FOR UNKNOWN INDICATION
  5. NEXIUM [Concomitant]
     Indication: GASTROOESOPHAGEAL REFLUX DISEASE
  6. PANADEINE CO [Concomitant]

REACTIONS (29)
  - FIBROCYSTIC BREAST DISEASE [None]
  - FALL [None]
  - PULMONARY EMBOLISM [None]
  - MUSCULOSKELETAL PAIN [None]
  - SUPRAVENTRICULAR TACHYCARDIA [None]
  - BACK INJURY [None]
  - ARTHROPOD BITE [None]
  - DEEP VEIN THROMBOSIS [None]
  - DIZZINESS [None]
  - NAUSEA [None]
  - METRORRHAGIA [None]
  - BLOOD POTASSIUM INCREASED [None]
  - TENDONITIS [None]
  - HEADACHE [None]
  - CHEST PAIN [None]
  - EXCORIATION [None]
  - LIMB INJURY [None]
  - BURSITIS [None]
  - ABDOMINAL PAIN [None]
  - DYSPNOEA [None]
  - UTERINE LEIOMYOMA [None]
  - CONTUSION [None]
  - PELVIC PAIN [None]
  - MUSCLE RUPTURE [None]
  - PAIN [None]
  - JOINT INJURY [None]
  - MYOSITIS [None]
  - OEDEMA PERIPHERAL [None]
  - VOMITING [None]
